FAERS Safety Report 4591624-X (Version None)
Quarter: 2005Q1

REPORT INFORMATION
  Report Type: 
  Country: None (occurrence: None)
  Receive Date: 20050222
  Receipt Date: 20050209
  Transmission Date: 20050727
  Serious: Yes (Death)
  Sender: FDA-Public Use
  Company Number: 2005028789

PATIENT
  Age: 87 Year
  Sex: Female

DRUGS (9)
  1. PREDNISONE [Suspect]
     Indication: POLYMYALGIA RHEUMATICA
     Dosage: (10 MG, 1 D), ORAL
     Route: 048
     Dates: end: 20040101
  2. PREDNISONE [Suspect]
     Indication: RENAL FAILURE CHRONIC
     Dosage: (10 MG, 1 D), ORAL
     Route: 048
     Dates: end: 20040101
  3. ALFACALCIDOL (ALFACALCIDOL) [Concomitant]
  4. LANSOPRAZOLE [Concomitant]
  5. FERROUS FUMARATE [Concomitant]
  6. CALCIUM CARBONATE (CALCIUM CARBONATE) [Concomitant]
  7. FLUCLOXACILLIN (FLUCLOXACILLIN) [Concomitant]
  8. CLOTRIMAZOLE (CLOTRIMAZOLE) [Concomitant]
  9. FLUCONAZOLE [Concomitant]

REACTIONS (1)
  - GASTRIC PERFORATION [None]
